FAERS Safety Report 21726191 (Version 1)
Quarter: 2022Q4

REPORT INFORMATION
  Report Type: Spontaneous
  Country: US (occurrence: US)
  Receive Date: 20221214
  Receipt Date: 20221214
  Transmission Date: 20230112
  Serious: No
  Sender: FDA-Public Use
  Company Number: US-NOVEN PHARMACEUTICALS, INC.-2022-NOV-US000948

PATIENT
  Age: 72 Year
  Sex: Female

DRUGS (4)
  1. ESTRADIOL [Suspect]
     Active Substance: ESTRADIOL
     Indication: Atrophic vulvovaginitis
     Dosage: 0.0375 MG, UNKNOWN
     Route: 062
     Dates: start: 2022
  2. ESTRADIOL [Suspect]
     Active Substance: ESTRADIOL
     Indication: Libido decreased
     Dosage: 0.05 MG, UNKNOWN
     Route: 062
     Dates: start: 2021
  3. ESTRADIOL [Suspect]
     Active Substance: ESTRADIOL
     Indication: Off label use
     Dosage: 0.0375 MG, UNKNOWN
     Route: 062
  4. ESTRADIOL [Suspect]
     Active Substance: ESTRADIOL
     Dosage: 0.05 MG, UNKNOWN
     Route: 062
     Dates: start: 202003

REACTIONS (3)
  - Breast tenderness [Not Recovered/Not Resolved]
  - Wrong technique in product usage process [Recovered/Resolved]
  - Off label use [Not Recovered/Not Resolved]

NARRATIVE: CASE EVENT DATE: 20210101
